FAERS Safety Report 4606658-6 (Version None)
Quarter: 2005Q1

REPORT INFORMATION
  Report Type: 
  Country: None (occurrence: None)
  Receive Date: 20050314
  Receipt Date: 20050302
  Transmission Date: 20050727
  Serious: Yes (Other)
  Sender: FDA-Public Use
  Company Number: IT-JNJFOC-20050300709

PATIENT
  Age: 45 Year
  Sex: Male

DRUGS (3)
  1. INFLIXIMAB [Suspect]
     Indication: RHEUMATOID ARTHRITIS
     Dosage: DAYS 0,15 AND 45 AND THEN EVERY 8 WEEKS
     Route: 042
  2. METHOTREXATE [Concomitant]
  3. HYDROXYCHLOROQUINE SULFATE [Concomitant]

REACTIONS (3)
  - LUPUS-LIKE SYNDROME [None]
  - PERICARDIAL EFFUSION [None]
  - PLEURAL EFFUSION [None]
